FAERS Safety Report 8954932 (Version 2)
Quarter: 2012Q4

REPORT INFORMATION
  Report Type: 
  Country: US (occurrence: US)
  Receive Date: 20121210
  Receipt Date: 20121228
  Transmission Date: 20130627
  Serious: Yes (Other)
  Sender: FDA-Public Use
  Company Number: US-BAYER-2012-129027

PATIENT
  Age: 51 Year
  Sex: Male

DRUGS (1)
  1. BETASERON [Suspect]
     Indication: MS
     Dosage: 0.25 mg, QOD
     Route: 058
     Dates: start: 1999, end: 201204

REACTIONS (1)
  - Renal cancer [None]
